FAERS Safety Report 5893251-0 (Version None)
Quarter: 2008Q3

REPORT INFORMATION
  Report Type: 
  Country: None (occurrence: None)
  Receive Date: 20080919
  Receipt Date: 20080910
  Transmission Date: 20090109
  Serious: Yes (Hospitalization, Other)
  Sender: FDA-Public Use
  Company Number: 2005AP000957

PATIENT
  Age: 12 Hour
  Sex: Female

DRUGS (2)
  1. PAROXETINE HCL [Suspect]
     Indication: DEPRESSION
     Dosage: 30 MG, TAB, TRPL; QD
     Route: 064
  2. CHLORPROMAZINE [Suspect]
     Indication: ANXIETY
     Dosage: 50 MG, TRPL, BID
     Route: 064

REACTIONS (22)
  - AGITATION NEONATAL [None]
  - BLOOD CREATINE PHOSPHOKINASE INCREASED [None]
  - CONVULSION NEONATAL [None]
  - DECREASED APPETITE [None]
  - DRUG WITHDRAWAL SYNDROME NEONATAL [None]
  - DYSKINESIA [None]
  - FEEDING DISORDER NEONATAL [None]
  - FEVER NEONATAL [None]
  - HYPERREFLEXIA [None]
  - HYPERTONIA NEONATAL [None]
  - INTERCOSTAL RETRACTION [None]
  - MATERNAL DRUGS AFFECTING FOETUS [None]
  - NEONATAL DISORDER [None]
  - NEONATAL RESPIRATORY DISTRESS SYNDROME [None]
  - NEONATAL TACHYPNOEA [None]
  - OPISTHOTONUS [None]
  - POLYCYTHAEMIA [None]
  - POSTURE ABNORMAL [None]
  - PSYCHOMOTOR HYPERACTIVITY [None]
  - SEROTONIN SYNDROME [None]
  - TONIC CLONIC MOVEMENTS [None]
  - TREMOR NEONATAL [None]
